FAERS Safety Report 24767586 (Version 6)
Quarter: 2025Q3

REPORT INFORMATION
  Report Type: Report from Study
  Country: KR (occurrence: KR)
  Receive Date: 20241223
  Receipt Date: 20250707
  Transmission Date: 20251021
  Serious: Yes (Death, Hospitalization, Other)
  Sender: TAKEDA
  Company Number: KR-TAKEDA-2024TUS127615

PATIENT
  Age: 26 Year
  Sex: Female
  Weight: 44.1 kg

DRUGS (20)
  1. MARIBAVIR [Suspect]
     Active Substance: MARIBAVIR
     Indication: Cytomegalovirus infection
     Dosage: 400 MILLIGRAM, BID
     Dates: start: 20241114, end: 20241206
  2. AMLODIPINE OROTATE [Concomitant]
     Active Substance: AMLODIPINE OROTATE
     Indication: Hypertension
     Dosage: 5 MILLIGRAM, QD
     Dates: start: 20241120, end: 20241202
  3. RUXOLITINIB [Concomitant]
     Active Substance: RUXOLITINIB
     Indication: Acute myeloid leukaemia
     Dosage: 10 MILLIGRAM, BID
     Dates: start: 20240816, end: 20241206
  4. DEFEROXAMINE MESYLATE [Concomitant]
     Active Substance: DEFEROXAMINE MESYLATE
     Indication: Haemochromatosis
     Dosage: 1840 MILLIGRAM, QD
     Dates: start: 20241101, end: 20241120
  5. Godex [Concomitant]
     Indication: Graft versus host disease in liver
     Dosage: UNK UNK, TID
     Dates: start: 20241031, end: 20241117
  6. Godex [Concomitant]
     Dosage: UNK UNK, TID
     Dates: start: 20241126, end: 20241127
  7. DIETARY SUPPLEMENT\HERBALS\MILK THISTLE [Concomitant]
     Active Substance: MILK THISTLE
     Indication: Graft versus host disease in liver
     Dosage: 280 MILLIGRAM, BID
     Dates: start: 20241128, end: 20241206
  8. SULFAMETHOXAZOLE\TRIMETHOPRIM [Concomitant]
     Active Substance: SULFAMETHOXAZOLE\TRIMETHOPRIM
     Indication: Infection prophylaxis
     Dosage: UNK UNK, QD
     Dates: start: 20240903, end: 20241204
  9. ORNITHINE ASPARTATE [Concomitant]
     Active Substance: ORNITHINE ASPARTATE
     Indication: Graft versus host disease in liver
     Dosage: 2000 MILLIGRAM, QD
     Dates: start: 20241118, end: 20241206
  10. DIFLUCAN [Concomitant]
     Active Substance: FLUCONAZOLE
     Indication: Infection prophylaxis
     Dosage: 400 MILLIGRAM, QD
     Dates: start: 20241118, end: 20241205
  11. NOXAFIL [Concomitant]
     Active Substance: POSACONAZOLE
     Indication: Infection prophylaxis
     Dosage: 500 MILLIGRAM, QD
     Dates: start: 20241111, end: 20241117
  12. CEFTRIAXONE [Concomitant]
     Active Substance: CEFTRIAXONE
     Indication: Infection prophylaxis
     Dosage: 2 GRAM, QD
     Dates: start: 20241121, end: 20241128
  13. MORPHINE SULFATE [Concomitant]
     Active Substance: MORPHINE SULFATE
     Indication: Abdominal pain
     Dates: start: 20240930, end: 20241207
  14. METHYLPREDNISOLONE [Concomitant]
     Active Substance: METHYLPREDNISOLONE
     Indication: Graft versus host disease in skin
     Dosage: 40 MILLIGRAM, BID
     Dates: start: 20241021, end: 20241030
  15. METHYLPREDNISOLONE [Concomitant]
     Active Substance: METHYLPREDNISOLONE
     Dosage: 60 MILLIGRAM, BID
     Dates: start: 20241031, end: 20241107
  16. TACROLIMUS [Concomitant]
     Active Substance: TACROLIMUS
     Indication: Prophylaxis against graft versus host disease
     Dosage: 0.25 MILLIGRAM, QD
     Dates: start: 20241014, end: 20241106
  17. NEUPOGEN [Concomitant]
     Active Substance: FILGRASTIM
     Indication: Acute myeloid leukaemia
     Dosage: 300 MICROGRAM, QD
     Dates: start: 20241206, end: 20241206
  18. URSODIOL [Concomitant]
     Active Substance: URSODIOL
     Indication: Graft versus host disease in liver
     Dosage: 200 MILLIGRAM, TID
     Dates: start: 20241024, end: 20241127
  19. URSODIOL [Concomitant]
     Active Substance: URSODIOL
     Dosage: 400 MILLIGRAM, BID
     Dates: start: 20241128, end: 20241206
  20. ENTECAVIR [Concomitant]
     Active Substance: ENTECAVIR
     Indication: Infection prophylaxis
     Dosage: 0.5 MILLIGRAM, QD
     Dates: start: 20240903, end: 20241205

REACTIONS (4)
  - Disseminated intravascular coagulation [Fatal]
  - Gastrointestinal haemorrhage [Not Recovered/Not Resolved]
  - Renal tubular acidosis [Not Recovered/Not Resolved]
  - Septic shock [Not Recovered/Not Resolved]

NARRATIVE: CASE EVENT DATE: 20241116
